FAERS Safety Report 15049635 (Version 2)
Quarter: 2019Q4

REPORT INFORMATION
  Report Type: Spontaneous
  Country: CA (occurrence: CA)
  Receive Date: 20180622
  Receipt Date: 20191017
  Transmission Date: 20200122
  Serious: Yes (Hospitalization, Other)
  Sender: FDA-Public Use
  Company Number: CA-TEVA-2018-CA-908441

PATIENT
  Age: 45 Year
  Sex: Female
  Weight: 60 kg

DRUGS (7)
  1. PANTOPRAZOLE [Concomitant]
     Active Substance: PANTOPRAZOLE
     Indication: PRODUCT USED FOR UNKNOWN INDICATION
  2. QUETIAPINE. [Concomitant]
     Active Substance: QUETIAPINE
     Indication: PRODUCT USED FOR UNKNOWN INDICATION
  3. TEMAZEPAM. [Concomitant]
     Active Substance: TEMAZEPAM
     Indication: PRODUCT USED FOR UNKNOWN INDICATION
  4. DULOXETINE HYDROCHLORIDE. [Suspect]
     Active Substance: DULOXETINE HYDROCHLORIDE
     Indication: BIPOLAR DISORDER
     Route: 048
  5. VALPROATE SEMISODIUM [Suspect]
     Active Substance: DIVALPROEX SODIUM
     Indication: PRODUCT USED FOR UNKNOWN INDICATION
     Route: 065
  6. ABILIFY [Concomitant]
     Active Substance: ARIPIPRAZOLE
     Indication: PRODUCT USED FOR UNKNOWN INDICATION
  7. HYDROMORPHONE [Concomitant]
     Active Substance: HYDROMORPHONE
     Indication: PRODUCT USED FOR UNKNOWN INDICATION

REACTIONS (19)
  - Acute kidney injury [Recovered/Resolved]
  - Polycythaemia [Recovered/Resolved]
  - Right ventricular dilatation [Recovered/Resolved]
  - Altered state of consciousness [Recovered/Resolved]
  - Atrial enlargement [Recovered/Resolved]
  - Liver injury [Recovered/Resolved]
  - Tricuspid valve incompetence [Recovered/Resolved]
  - Hypoxia [Recovered/Resolved]
  - Tremor [Recovered/Resolved]
  - Right ventricular dysfunction [Recovered/Resolved]
  - Hepatic cirrhosis [Recovered/Resolved]
  - Right ventricular failure [Recovered/Resolved]
  - Right ventricular systolic pressure increased [Recovered/Resolved]
  - Diarrhoea [Recovered/Resolved]
  - Cough [Recovered/Resolved]
  - Nausea [Recovered/Resolved]
  - Abdominal pain [Recovered/Resolved]
  - Drug-induced liver injury [Recovered/Resolved]
  - Sinus congestion [Recovered/Resolved]
